FAERS Safety Report 17877437 (Version 1)
Quarter: 2020Q2

REPORT INFORMATION
  Report Type: Spontaneous
  Country: US (occurrence: US)
  Receive Date: 20200609
  Receipt Date: 20200609
  Transmission Date: 20200714
  Serious: Yes (Other)
  Sender: FDA-Public Use
  Company Number: US-FRESENIUS KABI-FK202005751

PATIENT
  Age: 65 Year
  Sex: Male

DRUGS (1)
  1. METHYLPREDNISOLONE (MANUFACTURER UNKNOWN) [Suspect]
     Active Substance: METHYLPREDNISOLONE
     Indication: RESPIRATORY TRACT OEDEMA
     Dosage: UNKNOWN
     Route: 042

REACTIONS (2)
  - Renal impairment [Recovering/Resolving]
  - Symptom masked [Recovering/Resolving]
